FAERS Safety Report 5802407-4 (Version None)
Quarter: 2008Q3

REPORT INFORMATION
  Report Type: 
  Country: None (occurrence: None)
  Receive Date: 20080707
  Receipt Date: 20080630
  Transmission Date: 20090109
  Serious: Yes (Hospitalization)
  Sender: FDA-Public Use
  Company Number: ES-MERCK-0807ESP00001

PATIENT
  Age: 63 Year
  Sex: Male

DRUGS (4)
  1. JANUVIA [Suspect]
     Indication: DIABETES MELLITUS
     Route: 048
     Dates: start: 20080101, end: 20080501
  2. RAMIPRIL [Suspect]
     Route: 048
     Dates: end: 20080501
  3. TRIFLUSAL [Concomitant]
     Route: 048
     Dates: end: 20080501
  4. [THERAPY UNSPECIFIED] [Concomitant]
     Route: 065

REACTIONS (4)
  - ANXIETY [None]
  - COUGH [None]
  - DIZZINESS [None]
  - SYNCOPE VASOVAGAL [None]
